FAERS Safety Report 7535354-0 (Version None)
Quarter: 2011Q2

REPORT INFORMATION
  Report Type: 
  Country: None (occurrence: None)
  Receive Date: 20110609
  Receipt Date: 20080305
  Transmission Date: 20111010
  Serious: Yes (Death, Other)
  Sender: FDA-Public Use
  Company Number: PHFR2007GB03628

PATIENT
  Sex: Female

DRUGS (1)
  1. CLOZAPINE [Suspect]
     Indication: SCHIZOPHRENIA
     Route: 048
     Dates: start: 19970106

REACTIONS (4)
  - BLOOD CULTURE POSITIVE [None]
  - PERITONITIS [None]
  - GASTROINTESTINAL NECROSIS [None]
  - SEPSIS [None]
